FAERS Safety Report 14962427 (Version 1)
Quarter: 2018Q2

REPORT INFORMATION
  Report Type: Spontaneous
  Country: US (occurrence: US)
  Receive Date: 20180510
  Receipt Date: 20180510
  Transmission Date: 20180711
  Serious: No
  Sender: FDA-Public Use
  Company Number: None

PATIENT
  Age: 38 Year
  Sex: Female

DRUGS (12)
  1. FENTANYL. [Concomitant]
     Active Substance: FENTANYL
  2. METHOTREXATE. [Concomitant]
     Active Substance: METHOTREXATE
  3. NEURONTIN [Concomitant]
     Active Substance: GABAPENTIN
  4. OTEZLA [Concomitant]
     Active Substance: APREMILAST
  5. MULTIVITAMIN [Concomitant]
     Active Substance: VITAMINS
  6. CELEBREX [Concomitant]
     Active Substance: CELECOXIB
  7. AMITRIPTYLIN [Concomitant]
     Active Substance: AMITRIPTYLINE
  8. HUMIRA [Suspect]
     Active Substance: ADALIMUMAB
     Indication: PSORIASIS
     Route: 058
     Dates: start: 20100603
  9. GABAPENTIN. [Concomitant]
     Active Substance: GABAPENTIN
  10. HYDROCHLOROT [Concomitant]
     Active Substance: HYDROCHLOROTHIAZIDE
  11. FOLIC ACID. [Concomitant]
     Active Substance: FOLIC ACID
  12. PHENERGAN [Concomitant]
     Active Substance: PROMETHAZINE HYDROCHLORIDE

REACTIONS (11)
  - Discomfort [None]
  - Loss of personal independence in daily activities [None]
  - Fluid retention [None]
  - Contusion [None]
  - Pain [None]
  - Drug dose omission [None]
  - Joint swelling [None]
  - Spinal disorder [None]
  - Arthralgia [None]
  - Condition aggravated [None]
  - Rash [None]

NARRATIVE: CASE EVENT DATE: 20180502
